FAERS Safety Report 6014652-6 (Version None)
Quarter: 2008Q4

REPORT INFORMATION
  Report Type: 
  Country: None (occurrence: None)
  Receive Date: 20081219
  Receipt Date: 20081017
  Transmission Date: 20090506
  Serious: No
  Sender: FDA-Public Use
  Company Number: A0752391A

PATIENT
  Age: 59 Year
  Sex: Male

DRUGS (2)
  1. AVODART [Suspect]
     Indication: BENIGN PROSTATIC HYPERPLASIA
     Dosage: .5MG PER DAY
     Route: 048
     Dates: start: 20080901
  2. FLOMAX [Concomitant]

REACTIONS (6)
  - ABDOMINAL SYMPTOM [None]
  - FAECAL INCONTINENCE [None]
  - HYPERHIDROSIS [None]
  - MUSCLE SPASMS [None]
  - PARAESTHESIA [None]
  - POLLAKIURIA [None]
